FAERS Safety Report 7242517-0 (Version None)
Quarter: 2011Q1

REPORT INFORMATION
  Report Type: 
  Country: None (occurrence: None)
  Receive Date: 20110125
  Receipt Date: 20110111
  Transmission Date: 20110831
  Serious: Yes (Disabling, Other)
  Sender: FDA-Public Use
  Company Number: GB-RANBAXY-2006RR-03523

PATIENT
  Age: 71 Year
  Sex: Male

DRUGS (9)
  1. SIMVASTATIN [Suspect]
     Indication: HYPERCHOLESTEROLAEMIA
     Dosage: 10 MG, QD
     Route: 048
     Dates: start: 20020210, end: 20030121
  2. ASPIRIN [Concomitant]
     Indication: TRANSIENT GLOBAL AMNESIA
  3. ACETAMINOPHEN [Concomitant]
     Dosage: 1 DF, QID
     Route: 048
     Dates: start: 20021015, end: 20060111
  4. ASPIRIN [Concomitant]
     Indication: TRANSIENT ISCHAEMIC ATTACK
     Dosage: 75 MG, QD
     Route: 048
     Dates: start: 20050715
  5. SIMVASTATIN [Suspect]
     Dosage: 20 MG, UNK
     Route: 048
     Dates: start: 20101217
  6. ACETAMINOPHEN W/ PROPOXYPHENE HCL [Concomitant]
     Dosage: 4 DF, QD
     Route: 048
     Dates: start: 20021015, end: 20060111
  7. DOTHIEPIN HYDROCHLORIDE [Concomitant]
     Dosage: UNK
     Route: 048
     Dates: start: 20050314, end: 20060111
  8. ACETAMINOPHEN WITH PROPOXYPHENE HCL TAB [Concomitant]
  9. SIMVASTATIN [Suspect]
     Dosage: 10 MG, QD
     Route: 048
     Dates: start: 20031212, end: 20060322

REACTIONS (5)
  - ERECTILE DYSFUNCTION [None]
  - ALOPECIA [None]
  - INTENTIONAL OVERDOSE [None]
  - TRANSIENT GLOBAL AMNESIA [None]
  - SUICIDE ATTEMPT [None]
